FAERS Safety Report 6534382-1 (Version None)
Quarter: 2010Q1

REPORT INFORMATION
  Report Type: 
  Country: None (occurrence: None)
  Receive Date: 20100112
  Receipt Date: 20100107
  Transmission Date: 20100710
  Serious: Yes (Death)
  Sender: FDA-Public Use
  Company Number: US-ELI_LILLY_AND_COMPANY-US201001001040

PATIENT
  Age: 62 Year
  Sex: Male
  Weight: 90.703 kg

DRUGS (2)
  1. GEMZAR [Suspect]
     Indication: LUNG NEOPLASM MALIGNANT
     Dosage: 1500 MG, OTHER
     Route: 042
     Dates: start: 20090101, end: 20090615
  2. TAXOTERE [Concomitant]
     Indication: LUNG NEOPLASM MALIGNANT
     Dosage: 30 MG/M2, UNK

REACTIONS (1)
  - DEATH [None]
